FAERS Safety Report 9166063 (Version 1)
Quarter: 2013Q1

REPORT INFORMATION
  Report Type: Spontaneous
  Country: US (occurrence: US)
  Receive Date: 20130315
  Receipt Date: 20130315
  Transmission Date: 20140127
  Serious: No
  Sender: FDA-Public Use
  Company Number: US-PFIZER INC-2013086811

PATIENT
  Age: 31 Year
  Sex: Female
  Weight: 99.77 kg

DRUGS (3)
  1. EFFEXOR XR [Suspect]
     Indication: ANXIETY
     Dosage: 250 MG, 1X/DAY
     Route: 048
     Dates: end: 20130301
  2. PROZAC [Concomitant]
     Dosage: UNK
  3. ABILIFY [Concomitant]
     Dosage: UNK

REACTIONS (1)
  - Drug screen false positive [Unknown]
